FAERS Safety Report 8539769-3 (Version None)
Quarter: 2012Q3

REPORT INFORMATION
  Report Type: 
  Country: None (occurrence: None)
  Receive Date: 20120726
  Receipt Date: 20070516
  Transmission Date: 20120928
  Serious: Yes (Other)
  Sender: FDA-Public Use
  Company Number: CO-PFIZER INC-2012180184

PATIENT
  Age: 92 Year
  Sex: Female

DRUGS (4)
  1. GLIBENCLAMIDE [Concomitant]
     Dosage: 5 MG, 1X/DAY
  2. NORVASC [Suspect]
     Dosage: 5 MG, 1X/DAY
  3. LIPITOR [Suspect]
     Dosage: 10 MG, 1X/DAY
  4. OLMESARTAN MEDOXOMIL [Suspect]
     Dosage: 20 MG, 1X/DAY

REACTIONS (5)
  - PARAESTHESIA [None]
  - HEADACHE [None]
  - PAIN IN EXTREMITY [None]
  - CHEST PAIN [None]
  - TYPE V HYPERLIPIDAEMIA [None]
